FAERS Safety Report 7630467 (Version 3)
Quarter: 2012Q4

REPORT INFORMATION
  Report Type: Report from Study
  Country: DE (occurrence: DE)
  Receive Date: 20101015
  Receipt Date: 20121115
  Transmission Date: 20130627
  Serious: Yes (Death, Hospitalization)
  Sender: FDA-Public Use
  Company Number: DE-ELI_LILLY_AND_COMPANY-DE201009006766

PATIENT
  Age: 72 Year
  Sex: Female
  Weight: 60 kg

DRUGS (2)
  1. PEMETREXED [Suspect]
     Indication: NON-SMALL CELL LUNG CANCER
     Dosage: 820 mg, UNK
     Dates: start: 20100701
  2. CISPLATIN [Suspect]
     Indication: NON-SMALL CELL LUNG CANCER
     Dosage: 123 mg, UNK
     Dates: start: 20100701

REACTIONS (3)
  - Confusional state [Not Recovered/Not Resolved]
  - General physical health deterioration [Fatal]
  - Bronchitis [Fatal]
